FAERS Safety Report 8308558-7 (Version None)
Quarter: 2012Q2

REPORT INFORMATION
  Report Type: 
  Country: None (occurrence: None)
  Receive Date: 20120424
  Receipt Date: 20120411
  Transmission Date: 20120825
  Serious: Yes (Other)
  Sender: FDA-Public Use
  Company Number: CA-ELI_LILLY_AND_COMPANY-CA201204003551

PATIENT
  Age: 30 Year
  Sex: Male

DRUGS (6)
  1. ZYPREXA [Suspect]
  2. RISPERDAL CONSTA [Concomitant]
     Dosage: 25 MG, 2/M
     Route: 030
  3. ABILIFY [Concomitant]
     Dosage: 20 MG, QD
     Route: 048
  4. LITHIUM CARBONATE [Concomitant]
     Dosage: 900 MG, QOD
  5. RISPERIDONE [Concomitant]
  6. HALDOL [Concomitant]

REACTIONS (4)
  - IRRITABILITY [None]
  - ANXIETY [None]
  - PSYCHOTIC DISORDER [None]
  - AGITATION [None]
